FAERS Safety Report 16094276 (Version 1)
Quarter: 2019Q1

REPORT INFORMATION
  Report Type: Spontaneous
  Country: PT (occurrence: PT)
  Receive Date: 20190320
  Receipt Date: 20190320
  Transmission Date: 20190418
  Serious: Yes (Other)
  Sender: FDA-Public Use
  Company Number: PT-ACCORD-114533

PATIENT
  Age: 51 Year
  Weight: 65 kg

DRUGS (1)
  1. ANASTROZOL ACCORD [Suspect]
     Active Substance: ANASTROZOLE
     Indication: BREAST CANCER
     Dosage: 1 TABLET DAILY
     Route: 048
     Dates: start: 20180212, end: 20180212

REACTIONS (2)
  - Erythema [Recovered/Resolved]
  - Pruritus generalised [Recovered/Resolved]

NARRATIVE: CASE EVENT DATE: 20180212
